FAERS Safety Report 17834937 (Version 1)
Quarter: 2020Q2

REPORT INFORMATION
  Report Type: Spontaneous
  Country: US (occurrence: US)
  Receive Date: 20200528
  Receipt Date: 20200528
  Transmission Date: 20200714
  Serious: Yes (Other)
  Sender: FDA-Public Use
  Company Number: US-HIKMA PHARMACEUTICALS USA INC.-US-H14001-20-02514

PATIENT
  Sex: Male

DRUGS (2)
  1. CORTISONE [Suspect]
     Active Substance: CORTISONE
     Indication: ARTHROPATHY
     Route: 065
     Dates: start: 20191224
  2. JAKAFI [Suspect]
     Active Substance: RUXOLITINIB
     Indication: MYELOFIBROSIS
     Route: 048
     Dates: start: 201606

REACTIONS (3)
  - Increased tendency to bruise [Unknown]
  - Dysstasia [Unknown]
  - Contusion [Unknown]
